FAERS Safety Report 18485402 (Version 2)
Quarter: 2020Q4

REPORT INFORMATION
  Report Type: Spontaneous
  Country: JP (occurrence: JP)
  Receive Date: 20201110
  Receipt Date: 20201228
  Transmission Date: 20210114
  Serious: Yes (Other)
  Sender: FDA-Public Use
  Company Number: JP-BAYER-2020-234471

PATIENT
  Age: 70 Year
  Sex: Male

DRUGS (1)
  1. NEXAVAR [Suspect]
     Active Substance: SORAFENIB
     Dosage: 400 MG
     Dates: start: 201907, end: 202001

REACTIONS (2)
  - Oesophageal carcinoma [None]
  - Proteinuria [Recovered/Resolved]

NARRATIVE: CASE EVENT DATE: 20190730
